FAERS Safety Report 8469252-5 (Version None)
Quarter: 2012Q2

REPORT INFORMATION
  Report Type: 
  Country: None (occurrence: None)
  Receive Date: 20120626
  Receipt Date: 20120611
  Transmission Date: 20120825
  Serious: Yes (Other)
  Sender: FDA-Public Use
  Company Number: DE-TEVA-342660GER

PATIENT
  Age: 0 Year
  Sex: Female
  Weight: 3 kg

DRUGS (3)
  1. LAMOTRIGINE [Suspect]
     Route: 064
     Dates: start: 20110409
  2. GYNVITAL [Concomitant]
     Route: 064
     Dates: start: 20110409
  3. LEVOTHYROXINE [Concomitant]
     Route: 064
     Dates: start: 20110409

REACTIONS (2)
  - POOR WEIGHT GAIN NEONATAL [None]
  - SOMNOLENCE [None]
